FAERS Safety Report 7396143-3 (Version None)
Quarter: 2011Q2

REPORT INFORMATION
  Report Type: 
  Country: None (occurrence: None)
  Receive Date: 20110406
  Receipt Date: 20110324
  Transmission Date: 20111010
  Serious: Yes (Life-Threatening, Hospitalization, Other)
  Sender: FDA-Public Use
  Company Number: CH-AMGEN-CHESP2011017080

PATIENT
  Age: 61 Year
  Sex: Male
  Weight: 100 kg

DRUGS (11)
  1. METHOTREXATE SODIUM [Suspect]
     Indication: RHEUMATOID ARTHRITIS
     Dosage: UNK
     Route: 058
     Dates: start: 20100401, end: 20100401
  2. ALDACTONE [Concomitant]
     Indication: CARDIAC FAILURE CONGESTIVE
     Dosage: UNK
     Route: 048
     Dates: end: 20110131
  3. PREDNISONE [Suspect]
     Indication: RHEUMATOID ARTHRITIS
     Dosage: 50 MG, 1X/DAY
     Route: 048
     Dates: start: 20101015, end: 20101128
  4. FUROSEMID                          /00032601/ [Concomitant]
     Indication: CARDIAC FAILURE CONGESTIVE
     Dosage: UNK
     Route: 048
     Dates: end: 20110131
  5. PREDNISONE [Suspect]
     Dosage: 25 MG, 1X/DAY
     Route: 048
     Dates: start: 20101129, end: 20101230
  6. HUMIRA [Suspect]
     Indication: RHEUMATOID ARTHRITIS
     Dosage: UNK
     Route: 041
     Dates: start: 20110121, end: 20110121
  7. ENBREL [Suspect]
     Indication: RHEUMATOID ARTHRITIS
     Dosage: 50 MG, WEEKLY
     Route: 058
     Dates: start: 20101122, end: 20110121
  8. METHOTREXATE SODIUM [Suspect]
     Dosage: 17.5 MG, WEEKLY
     Dates: start: 20100716, end: 20100922
  9. NOVALGIN                           /06276704/ [Suspect]
     Indication: RHEUMATOID ARTHRITIS
     Dosage: 1 DF, 3X/DAY
     Route: 048
     Dates: start: 20110114, end: 20110117
  10. METHOTREXATE SODIUM [Suspect]
     Dosage: 15 MG, WEEKLY
     Route: 048
     Dates: start: 20100428, end: 20100715
  11. ARAVA [Suspect]
     Indication: RHEUMATOID ARTHRITIS
     Dosage: 20 MG, 1X/DAY
     Route: 048
     Dates: start: 20100922, end: 20101122

REACTIONS (8)
  - VENTRICULAR TACHYCARDIA [None]
  - RHEUMATOID ARTHRITIS [None]
  - CARDIAC FAILURE CONGESTIVE [None]
  - ALTERED STATE OF CONSCIOUSNESS [None]
  - AMYLOIDOSIS [None]
  - CARDIAC ARREST [None]
  - HYPERTHERMIA [None]
  - VENTRICULAR FIBRILLATION [None]
